FAERS Safety Report 5298808-6 (Version None)
Quarter: 2007Q2

REPORT INFORMATION
  Report Type: 
  Country: None (occurrence: None)
  Receive Date: 20070417
  Receipt Date: 20070410
  Transmission Date: 20071010
  Serious: Yes (Other)
  Sender: FDA-Public Use
  Company Number: US-ROCHE-492337

PATIENT
  Age: 26 Year
  Sex: Female

DRUGS (3)
  1. ACCUTANE [Suspect]
     Route: 065
     Dates: start: 19980307, end: 19980407
  2. ACCUTANE [Suspect]
     Route: 065
     Dates: start: 19980407
  3. ACCUTANE [Suspect]
     Route: 065
     Dates: start: 19980514, end: 19980525

REACTIONS (2)
  - NO ADVERSE EFFECT [None]
  - PREGNANCY [None]
